FAERS Safety Report 9403489 (Version 1)
Quarter: 2013Q3

REPORT INFORMATION
  Report Type: Report from Study
  Country: FR (occurrence: FR)
  Receive Date: 20130716
  Receipt Date: 20130716
  Transmission Date: 20140515
  Serious: Yes (Other)
  Sender: FDA-Public Use
  Company Number: FR-GILEAD-2013-0078997

PATIENT
  Sex: 0

DRUGS (1)
  1. CIDOFOVIR [Suspect]
     Indication: HIV INFECTION

REACTIONS (1)
  - Renal tubular disorder [Unknown]
